FAERS Safety Report 9308094 (Version 7)
Quarter: 2015Q2

REPORT INFORMATION
  Report Type: Spontaneous
  Country: US (occurrence: US)
  Receive Date: 20130524
  Receipt Date: 20150623
  Transmission Date: 20150821
  Serious: Yes (Hospitalization, Other)
  Sender: FDA-Public Use
  Company Number: US-009507513-1305USA013036

PATIENT
  Sex: Male

DRUGS (6)
  1. PROSCAR [Suspect]
     Active Substance: FINASTERIDE
     Indication: BENIGN PROSTATIC HYPERPLASIA
  2. FINASTERIDE. [Suspect]
     Active Substance: FINASTERIDE
     Indication: BENIGN PROSTATIC HYPERPLASIA
  3. VIAGRA [Suspect]
     Active Substance: SILDENAFIL CITRATE
     Dosage: UNK
     Route: 048
     Dates: start: 201003, end: 201104
  4. PROSCAR [Suspect]
     Active Substance: FINASTERIDE
     Indication: ROUTINE HEALTH MAINTENANCE
     Dosage: 5 MG, QD
     Route: 048
     Dates: start: 20020730, end: 2011
  5. FINASTERIDE. [Suspect]
     Active Substance: FINASTERIDE
     Indication: ROUTINE HEALTH MAINTENANCE
     Dosage: 5 MG, UNK
     Route: 048
     Dates: start: 200401, end: 2011
  6. PROTONIX [Concomitant]
     Active Substance: PANTOPRAZOLE SODIUM
     Indication: GASTROOESOPHAGEAL REFLUX DISEASE
     Dosage: UNK
     Dates: start: 2000

REACTIONS (21)
  - Urinary retention [Unknown]
  - Erectile dysfunction [Not Recovered/Not Resolved]
  - Testicular disorder [Unknown]
  - Drug ineffective [Unknown]
  - Brain injury [Unknown]
  - Back pain [Unknown]
  - Neck pain [Unknown]
  - Depression [Unknown]
  - Anxiety [Unknown]
  - Bladder outlet obstruction [Unknown]
  - Soft tissue injury [Unknown]
  - Urethral stenosis [Unknown]
  - Blood pressure abnormal [Unknown]
  - Rotator cuff repair [Unknown]
  - Hormone level abnormal [Unknown]
  - Sexual dysfunction [Not Recovered/Not Resolved]
  - Libido decreased [Unknown]
  - Cerebrovascular accident [Unknown]
  - Semen volume decreased [Unknown]
  - Disturbance in attention [Unknown]
  - Premature ejaculation [Unknown]

NARRATIVE: CASE EVENT DATE: 2003
